FAERS Safety Report 4645273-5 (Version None)
Quarter: 2005Q2

REPORT INFORMATION
  Report Type: 
  Country: None (occurrence: None)
  Receive Date: 20050331
  Receipt Date: 20050222
  Transmission Date: 20051028
  Serious: No
  Sender: FDA-Public Use
  Company Number: 05P-163-0291672

PATIENT
  Age: 36 Year
  Sex: Female
  Weight: 49.8957 kg

DRUGS (15)
  1. HUMIRA [Suspect]
     Indication: RHEUMATOID ARTHRITIS
     Dosage: 40 MG, 1 IN 2 WK, SUBCUTANEOUS
     Route: 058
     Dates: start: 20040601
  2. HUMIRA [Suspect]
     Indication: SYSTEMIC LUPUS ERYTHEMATOSUS
     Dosage: 40 MG, 1 IN 2 WK, SUBCUTANEOUS
     Route: 058
     Dates: start: 20040601
  3. XANGO [Concomitant]
  4. PROLPA [Concomitant]
  5. FLORA PLUS [Concomitant]
  6. PERNA PLUS [Concomitant]
  7. XANACHROM [Concomitant]
  8. ALENDRONATE SODIUM [Concomitant]
  9. AZATHIOPRINE [Concomitant]
  10. HYDROCHLOROTHIAZIDE [Concomitant]
  11. AMLODIPINE BESYLATE [Concomitant]
  12. PREDNISONE [Concomitant]
  13. MAGNESIUM [Concomitant]
  14. FLAX OIL [Concomitant]
  15. SUPER FRUIT AND GREEN [Concomitant]

REACTIONS (1)
  - INJECTION SITE HAEMORRHAGE [None]
